FAERS Safety Report 5240158-8 (Version None)
Quarter: 2007Q1

REPORT INFORMATION
  Report Type: 
  Country: None (occurrence: None)
  Receive Date: 20070216
  Receipt Date: 20070207
  Transmission Date: 20070707
  Serious: Yes (Other)
  Sender: FDA-Public Use
  Company Number: CA-PFIZER INC-2007011668

PATIENT
  Age: 61 Year
  Sex: Female

DRUGS (6)
  1. LYRICA [Suspect]
     Indication: HERPES ZOSTER
     Route: 048
  2. GLYBURIDE [Concomitant]
  3. SOTALOL HYDROCHLORIDE [Concomitant]
  4. PREMARIN [Concomitant]
  5. DIGOXIN [Concomitant]
  6. CIMETIDINE HCL [Concomitant]

REACTIONS (1)
  - PERIPHERAL VASCULAR DISORDER [None]
